FAERS Safety Report 8230867-0 (Version None)
Quarter: 2012Q1

REPORT INFORMATION
  Report Type: 
  Country: None (occurrence: None)
  Receive Date: 20120323
  Receipt Date: 20120316
  Transmission Date: 20120608
  Serious: Yes (Other)
  Sender: FDA-Public Use
  Company Number: CA-AMGEN-CANSP2012018150

PATIENT
  Sex: Female

DRUGS (3)
  1. ADRIAMYCIN PFS [Concomitant]
     Indication: BREAST CANCER
  2. CYCLOPHOSPHAMIDE [Concomitant]
     Indication: BREAST CANCER
  3. NEULASTA [Suspect]
     Indication: CHEMOTHERAPY

REACTIONS (2)
  - FEBRILE NEUTROPENIA [None]
  - COUGH [None]
